FAERS Safety Report 14852857 (Version 1)
Quarter: 2018Q2

REPORT INFORMATION
  Report Type: Spontaneous
  Country: GB (occurrence: GB)
  Receive Date: 20180507
  Receipt Date: 20180507
  Transmission Date: 20180711
  Serious: Yes (Hospitalization, Disabling, Other)
  Sender: FDA-Public Use
  Company Number: GB-WEST-WARD PHARMACEUTICALS CORP.-GB-H14001-18-03693

PATIENT
  Age: 39 Year
  Sex: Male
  Weight: 122.31 kg

DRUGS (1)
  1. CIPROFLOXACIN. [Suspect]
     Active Substance: CIPROFLOXACIN
     Indication: URINARY TRACT INFECTION
     Dosage: 500MG INTRAVENOUS FOLLOWED BY 3 X 500MG ORAL TABLET OVER PERIOD OF 3 DAYS TOTAL
     Dates: start: 20180223, end: 20180225

REACTIONS (3)
  - Tendonitis [Not Recovered/Not Resolved]
  - Ligament pain [Unknown]
  - Myalgia [Unknown]

NARRATIVE: CASE EVENT DATE: 20180226
